FAERS Safety Report 9869374 (Version 1)
Quarter: 2014Q1

REPORT INFORMATION
  Report Type: Spontaneous
  Country: GB (occurrence: GB)
  Receive Date: 20140205
  Receipt Date: 20140205
  Transmission Date: 20141002
  Serious: Yes (Hospitalization)
  Sender: FDA-Public Use
  Company Number: GB-ASTRAZENECA-2014SE06419

PATIENT
  Age: 69 Year
  Sex: Female
  Weight: 118 kg

DRUGS (11)
  1. LISINOPRIL [Suspect]
     Route: 048
  2. FUROSEMIDE [Concomitant]
     Dates: start: 20131014, end: 20131028
  3. FUROSEMIDE [Concomitant]
     Dates: start: 20131211, end: 20131225
  4. FUROSEMIDE [Concomitant]
     Dates: start: 20131111, end: 20131125
  5. LEVOTHYROXINE [Concomitant]
     Dates: start: 20131028, end: 20131111
  6. LEVOTHYROXINE [Concomitant]
     Dates: start: 20131125, end: 20131209
  7. METFORMIN [Concomitant]
     Dates: start: 20131021, end: 20131104
  8. METFORMIN [Concomitant]
     Dates: start: 20131118, end: 20131202
  9. PARACETAMOL [Concomitant]
     Dates: start: 20131014, end: 20131111
  10. SIMVASTATIN [Concomitant]
     Dates: start: 20131014, end: 20140108
  11. SITAGLIPTIN [Concomitant]
     Dates: start: 20130930, end: 20131223

REACTIONS (3)
  - Dyspnoea [Recovered/Resolved]
  - Swelling [Recovered/Resolved]
  - Angioedema [Recovered/Resolved]
